FAERS Safety Report 5869627-4 (Version None)
Quarter: 2008Q3

REPORT INFORMATION
  Report Type: 
  Country: None (occurrence: None)
  Receive Date: 20080904
  Receipt Date: 20080221
  Transmission Date: 20090109
  Serious: No
  Sender: FDA-Public Use
  Company Number: US-KINGPHARMUSA00001-K200800230

PATIENT

DRUGS (3)
  1. CYTOMEL [Suspect]
     Indication: THYROID DISORDER
     Dosage: 5 MCG, QD
     Route: 048
     Dates: start: 20060101, end: 20060101
  2. CYTOMEL [Suspect]
     Dosage: 5 MCG, BID
     Dates: start: 20080211
  3. XANAX [Concomitant]
     Indication: ANXIETY
     Route: 048

REACTIONS (4)
  - BODY TEMPERATURE DECREASED [None]
  - BODY TEMPERATURE INCREASED [None]
  - PERIPHERAL COLDNESS [None]
  - VISION BLURRED [None]
